FAERS Safety Report 7134983-6 (Version None)
Quarter: 2010Q4

REPORT INFORMATION
  Report Type: 
  Country: None (occurrence: None)
  Receive Date: 20101118
  Receipt Date: 20101108
  Transmission Date: 20110411
  Serious: Yes (Other)
  Sender: FDA-Public Use
  Company Number: B0684646A

PATIENT
  Age: 44 Year
  Sex: Female
  Weight: 92.806 kg

DRUGS (2)
  1. ARIXTRA [Suspect]
     Indication: COAGULOPATHY
     Dosage: SUBCUTANEOUS
     Route: 058
  2. PHENPROCOUMON [Concomitant]

REACTIONS (1)
  - TYPE IV HYPERSENSITIVITY REACTION [None]
